FAERS Safety Report 9253099 (Version 2)
Quarter: 2013Q3

REPORT INFORMATION
  Report Type: Spontaneous
  Country: US (occurrence: US)
  Receive Date: 20130424
  Receipt Date: 20130826
  Transmission Date: 20140515
  Serious: No
  Sender: FDA-Public Use
  Company Number: US-PFIZER INC-2013124069

PATIENT
  Age: 79 Year
  Sex: Male
  Weight: 65.76 kg

DRUGS (9)
  1. MORPHINE SULFATE [Suspect]
     Indication: PAIN
     Dosage: UNK
  2. LYRICA [Suspect]
     Indication: NEUROPATHY PERIPHERAL
     Dosage: 50 MG, 3X/DAY
     Dates: start: 201205, end: 201211
  3. LYRICA [Suspect]
     Dosage: 50MG 1X/DAY AND 100MG 2X/DAY
     Dates: start: 201211, end: 20130225
  4. LYRICA [Suspect]
     Dosage: 100 MG, 3X/DAY
     Dates: start: 20130225, end: 20130413
  5. BENADRYL [Suspect]
     Indication: PAIN
     Dosage: UNK
  6. VICODIN [Suspect]
     Indication: PAIN
     Dosage: UNK
  7. DEPO-MEDROL [Concomitant]
     Indication: MIXED CONNECTIVE TISSUE DISEASE
     Dosage: UNK
     Dates: start: 201304
  8. PREDNISONE [Concomitant]
     Indication: RHEUMATOID ARTHRITIS
     Dosage: 12 MG, UNK
     Dates: end: 20130409
  9. PREDNISONE [Concomitant]
     Dosage: 40 MG, UNK
     Dates: start: 20130409

REACTIONS (7)
  - Drug ineffective [Unknown]
  - Rash [Not Recovered/Not Resolved]
  - Blister [Not Recovered/Not Resolved]
  - Oedema peripheral [Recovering/Resolving]
  - Nasal disorder [Not Recovered/Not Resolved]
  - Insomnia [Not Recovered/Not Resolved]
  - Pain in extremity [Not Recovered/Not Resolved]
